FAERS Safety Report 24956534 (Version 1)
Quarter: 2025Q1

REPORT INFORMATION
  Report Type: Spontaneous
  Country: US (occurrence: US)
  Receive Date: 20250211
  Receipt Date: 20250211
  Transmission Date: 20250409
  Serious: No
  Sender: SUNSHINE LAKE PHARMA
  Company Number: US-Sunshine Lake Pharma Co, Ltd.-2170918

PATIENT

DRUGS (1)
  1. FEBUXOSTAT [Suspect]
     Active Substance: FEBUXOSTAT

REACTIONS (1)
  - Lip swelling [Not Recovered/Not Resolved]
